FAERS Safety Report 15106150 (Version 2)
Quarter: 2019Q1

REPORT INFORMATION
  Report Type: Spontaneous
  Country: FR (occurrence: FR)
  Receive Date: 20180704
  Receipt Date: 20190207
  Transmission Date: 20190417
  Serious: Yes (Other)
  Sender: FDA-Public Use
  Company Number: FR-ACCORD-069106

PATIENT
  Age: 40 Year
  Sex: Female
  Weight: 109 kg

DRUGS (2)
  1. VANCOMYCIN [Concomitant]
     Active Substance: VANCOMYCIN
  2. CISPLATINE ACCORD [Suspect]
     Active Substance: CISPLATIN
     Indication: UTERINE CANCER
     Dosage: 40MG / M2 IN 1 HOUR (3 TREATMENTS)
     Route: 042

REACTIONS (3)
  - Generalised erythema [Recovered/Resolved]
  - Off label use [Unknown]
  - Dyspnoea [Recovered/Resolved]

NARRATIVE: CASE EVENT DATE: 20180425
